FAERS Safety Report 6749759-9 (Version None)
Quarter: 2010Q2

REPORT INFORMATION
  Report Type: 
  Country: None (occurrence: None)
  Receive Date: 20100527
  Receipt Date: 20100527
  Transmission Date: 20101027
  Serious: Yes (Other)
  Sender: FDA-Public Use
  Company Number: None

PATIENT
  Age: 54 Year
  Sex: Male
  Weight: 68.0396 kg

DRUGS (1)
  1. UROXATRAL [Suspect]
     Indication: PROSTATOMEGALY
     Dosage: 1 TABLET (10MG) 1 X DAILY ORAL
     Route: 048
     Dates: start: 20100418, end: 20100516

REACTIONS (1)
  - DRUG INEFFECTIVE [None]
